FAERS Safety Report 4477632-8 (Version None)
Quarter: 2004Q4

REPORT INFORMATION
  Report Type: 
  Country: None (occurrence: None)
  Receive Date: 20041014
  Receipt Date: 20041007
  Transmission Date: 20050328
  Serious: Yes (Other)
  Sender: FDA-Public Use
  Company Number: HQWYE416126JUL04

PATIENT
  Sex: 0

DRUGS (2)
  1. RAPAMUNE [Suspect]
     Indication: RENAL TRANSPLANT
  2. LIPITOR [Concomitant]

REACTIONS (2)
  - ACUTE CORONARY SYNDROME [None]
  - MYOCARDIAL INFARCTION [None]
